FAERS Safety Report 22141636 (Version 3)
Quarter: 2023Q2

REPORT INFORMATION
  Report Type: Spontaneous
  Country: US (occurrence: US)
  Receive Date: 20230327
  Receipt Date: 20230531
  Transmission Date: 20230722
  Serious: Yes (Other)
  Sender: FDA-Public Use
  Company Number: US-PFIZER INC-202300129397

PATIENT
  Age: 72 Year
  Sex: Male
  Weight: 63.5 kg

DRUGS (4)
  1. PAXLOVID [Suspect]
     Active Substance: NIRMATRELVIR\RITONAVIR
     Indication: COVID-19 treatment
     Dosage: [PF-07321332 300 MG]/[RITONAVIR 100 MG]; 1X/DAY
     Route: 048
     Dates: start: 202302, end: 202302
  2. TRIPHALA [Concomitant]
     Indication: Dyspepsia
     Dosage: UNK
     Route: 048
  3. TRIPHALA [Concomitant]
     Indication: Inflammation
  4. TRIPHALA [Concomitant]
     Indication: Hyperchlorhydria

REACTIONS (9)
  - Mental impairment [Not Recovered/Not Resolved]
  - Balance disorder [Recovering/Resolving]
  - Thinking abnormal [Unknown]
  - Fall [Unknown]
  - Abnormal behaviour [Unknown]
  - Asthenia [Not Recovered/Not Resolved]
  - Memory impairment [Not Recovered/Not Resolved]
  - Stress [Not Recovered/Not Resolved]
  - Product dose omission issue [Unknown]

NARRATIVE: CASE EVENT DATE: 20230201
